FAERS Safety Report 5223518-0 (Version None)
Quarter: 2007Q1

REPORT INFORMATION
  Report Type: 
  Country: None (occurrence: None)
  Receive Date: 20070125
  Receipt Date: 20070117
  Transmission Date: 20070707
  Serious: Yes (Other)
  Sender: FDA-Public Use
  Company Number: HQWYE844118JAN07

PATIENT
  Age: 54 Year
  Sex: Female

DRUGS (3)
  1. TYGACIL [Suspect]
     Indication: INFECTION
     Dosage: 100MG LOAD, 50 MG EVERY 12 HOURS, INTRAVENOUS
     Route: 042
     Dates: start: 20070106, end: 20070109
  2. PRIMAXIN [Suspect]
     Indication: DECUBITUS ULCER
     Dosage: 500 MG 1X PER 12 HR, INTRAVENOUS
     Route: 042
  3. PRIMAXIN [Suspect]
     Indication: OSTEOMYELITIS
     Dosage: 500 MG 1X PER 12 HR, INTRAVENOUS
     Route: 042

REACTIONS (1)
  - NEUTROPENIA [None]
